FAERS Safety Report 10761172 (Version 1)
Quarter: 2015Q1

REPORT INFORMATION
  Report Type: Spontaneous
  Country: US (occurrence: None)
  Receive Date: 20150203
  Receipt Date: 20150203
  Transmission Date: 20150721
  Serious: No
  Sender: FDA-Public Use
  Company Number: None

PATIENT
  Age: 53 Year
  Sex: Female
  Weight: 89.36 kg

DRUGS (2)
  1. OMEPRAZOLE 20MG [Suspect]
     Active Substance: OMEPRAZOLE
     Indication: GASTRITIS
     Dosage: 1 ONCE DAILY TAKEN BY MOUTH
     Route: 048
  2. OMEPRAZOLE 20MG [Suspect]
     Active Substance: OMEPRAZOLE
     Indication: HIATUS HERNIA
     Dosage: 1 ONCE DAILY TAKEN BY MOUTH
     Route: 048

REACTIONS (1)
  - Hypoaesthesia oral [None]

NARRATIVE: CASE EVENT DATE: 20150131
